FAERS Safety Report 8478857-7 (Version None)
Quarter: 2012Q2

REPORT INFORMATION
  Report Type: 
  Country: None (occurrence: None)
  Receive Date: 20120629
  Receipt Date: 20120626
  Transmission Date: 20120825
  Serious: Yes (Life-Threatening, Hospitalization, Other)
  Sender: FDA-Public Use
  Company Number: DE-PFIZER INC-2008US-13321

PATIENT
  Age: 62 Year
  Sex: Male

DRUGS (54)
  1. THEOPHYLLINE [Suspect]
     Dosage: 200 MG - 600 MG
     Route: 042
     Dates: start: 20050627, end: 20050630
  2. PREDNISOLONE [Suspect]
     Indication: CHRONIC OBSTRUCTIVE PULMONARY DISEASE
     Dosage: 20 MG, 1X/DAY
     Route: 048
     Dates: start: 20050719
  3. PREDNISOLONE [Suspect]
     Dosage: 50 MG, 1X/DAY
     Route: 048
     Dates: start: 20050628, end: 20050705
  4. PREDNISOLONE [Suspect]
     Dosage: 100 MG, 1X/DAY
     Route: 048
     Dates: start: 20050721, end: 20050721
  5. DIGITOXIN TAB [Suspect]
     Indication: CARDIAC DISORDER
     Dosage: 0.1 MG, 1X/DAY
     Route: 048
     Dates: start: 20050708
  6. CALCIUM [Suspect]
     Indication: OSTEOPOROSIS
     Dosage: 500 MG, 2X/DAY
     Route: 048
     Dates: start: 20050715, end: 20050718
  7. ERGOCALCIFEROL [Suspect]
     Indication: OSTEOPOROSIS
     Dosage: 100 IU, 1X/DAY
     Route: 048
     Dates: start: 20050718, end: 20050718
  8. SALUTEC [Suspect]
     Indication: CORONARY ARTERY DISEASE
     Dosage: 5/25 DAILY
     Route: 048
     Dates: start: 20050703
  9. ACETYLCYSTEINE [Suspect]
     Dosage: 600 MG, 1X/DAY
     Route: 048
     Dates: start: 20050629, end: 20050712
  10. HEPARIN [Suspect]
     Indication: PROPHYLAXIS
     Dosage: 25000 IU, UNK
     Route: 058
     Dates: start: 20050627, end: 20050709
  11. JUNIK [Suspect]
     Indication: CHRONIC OBSTRUCTIVE PULMONARY DISEASE
     Dosage: 2 DF, 1X/DAY
     Route: 050
     Dates: start: 20050627, end: 20050715
  12. FORADIL [Suspect]
     Indication: CHRONIC OBSTRUCTIVE PULMONARY DISEASE
     Dosage: 2 DF, 1X/DAY
     Route: 050
     Dates: start: 20050629, end: 20050718
  13. SPIRIVA [Suspect]
     Indication: CHRONIC OBSTRUCTIVE PULMONARY DISEASE
     Dosage: 1 DF, 1X/DAY
     Route: 050
     Dates: start: 20040601
  14. AMBROXOL [Suspect]
     Indication: MUCOUS MEMBRANE DISORDER
     Dosage: 14 GTT, 2X/DAY
     Route: 048
     Dates: start: 20050701, end: 20050718
  15. NITROGLYCERIN [Suspect]
     Indication: HYPERTENSION
     Dosage: 50 MG, UNK
     Route: 042
     Dates: start: 20050702, end: 20050702
  16. VERAPAMIL HYDROCHLORIDE [Suspect]
     Indication: TACHYARRHYTHMIA
     Dosage: 80 MG-240MG, DAILY
     Route: 048
     Dates: start: 20050718
  17. RAMIPRIL [Suspect]
     Indication: CORONARY ARTERY DISEASE
     Dosage: 1 DF, 1X/DAY
     Route: 048
     Dates: start: 20050630, end: 20050702
  18. HALOPERIDOL [Suspect]
     Dosage: 10 GTT, 1X/DAY
     Route: 048
     Dates: start: 20050703, end: 20050703
  19. THEOPHYLLINE [Suspect]
     Indication: CHRONIC OBSTRUCTIVE PULMONARY DISEASE
     Dosage: 600 MG, 1X/DAY
     Route: 048
     Dates: start: 20050703, end: 20050709
  20. AMBROXOL [Suspect]
     Indication: EVIDENCE BASED TREATMENT
  21. CLORAZEPATE DIPOTASSIUM [Suspect]
     Indication: SEDATION
     Dosage: 5 MG, 3X/DAY + 10 MG AT NIGHT
     Route: 048
     Dates: start: 20050627, end: 20050702
  22. PANTOPRAZOLE [Suspect]
     Indication: PROPHYLAXIS
     Dosage: 40 MG, 1X/DAY
     Route: 048
     Dates: start: 20050703, end: 20050718
  23. THEOPHYLLINE [Suspect]
     Dosage: 600 MG, UNK
  24. BEROTEC [Suspect]
     Indication: CHRONIC OBSTRUCTIVE PULMONARY DISEASE
     Dosage: 2-3 TIMES, WEEKLY
     Route: 050
     Dates: start: 20040601
  25. ALT-INSULIN [Suspect]
     Indication: BLOOD GLUCOSE
     Dosage: UNK
     Route: 058
     Dates: start: 20050703, end: 20050703
  26. NORVASC [Suspect]
     Indication: CARDIAC DISORDER
     Dosage: 5 MG, 1X/DAY
     Route: 048
     Dates: start: 20050704, end: 20050709
  27. HALOPERIDOL [Suspect]
     Indication: SEDATION
     Dosage: 10 GTT, 1X/DAY
     Route: 048
     Dates: start: 20050629, end: 20050630
  28. RINGER'S [Suspect]
     Indication: FLUID REPLACEMENT
     Dosage: 1000 ML, 1X/DAY
     Route: 042
     Dates: start: 20050627, end: 20050703
  29. PANTOPRAZOLE [Suspect]
     Dosage: UNK
     Route: 048
     Dates: start: 20050629, end: 20050630
  30. THEOPHYLLINE [Suspect]
     Dosage: 200 MG, UNK
     Route: 042
     Dates: start: 20050721, end: 20050721
  31. PREDNISOLONE [Suspect]
     Dosage: 80 MG, 1X/DAY
     Route: 048
     Dates: start: 20050707, end: 20050715
  32. FUROSEMID [Suspect]
     Indication: HYPERTENSION
     Dosage: 40 MG, 1X/DAY
     Route: 048
     Dates: start: 20050707
  33. CALCIUM CARBONATE [Suspect]
     Indication: OSTEOPOROSIS
     Dosage: 2 DF, 1X/DAY
     Route: 048
     Dates: start: 20050719
  34. DISTRANEURIN [Suspect]
     Indication: ALCOHOL WITHDRAWAL SYNDROME
     Dosage: 2 DF, 3X/DAY
     Route: 048
     Dates: start: 20050630, end: 20050703
  35. RINGER'S [Suspect]
     Indication: VOLUME BLOOD INCREASED
  36. CLONIDINE HYDROCHLORIDE [Suspect]
     Indication: ALCOHOL WITHDRAWAL SYNDROME
     Dosage: 1.5 MG, 1X/DAY
     Route: 042
     Dates: start: 20050628, end: 20050630
  37. CLORAZEPATE DIPOTASSIUM [Suspect]
     Dosage: 5 MG, 3X/DAY + 10 MG AT NIGHT
     Route: 048
     Dates: start: 20050705, end: 20050705
  38. MARCUMAR [Suspect]
     Indication: ATRIAL FIBRILLATION
     Dosage: UNK
     Route: 048
     Dates: start: 20050710
  39. PREDNISOLONE [Suspect]
     Indication: CHRONIC OBSTRUCTIVE PULMONARY DISEASE
     Dosage: 15 MG, 1X/DAY
     Route: 048
     Dates: start: 20050716, end: 20050718
  40. FLUTICASONE PROPIONATE/SALMETEROL [Suspect]
     Indication: CHRONIC OBSTRUCTIVE PULMONARY DISEASE
     Route: 050
  41. VERAPAMIL HCL [Suspect]
     Indication: ATRIAL FIBRILLATION
     Dosage: 80 MG, 2X/DAY
     Route: 048
     Dates: start: 20050709
  42. ACETYLCYSTEINE [Suspect]
     Indication: MUCOUS MEMBRANE DISORDER
     Dosage: 300 MG, 2X/DAY
     Route: 048
     Dates: start: 20050629, end: 20050712
  43. THEOPHYLLINE [Suspect]
     Dosage: 200 MG, UNK
     Route: 042
     Dates: start: 20050718, end: 20050718
  44. PREDNISOLONE [Suspect]
     Dosage: 15 MG, 1X/DAY
     Route: 048
     Dates: start: 20050716, end: 20050718
  45. DELIX PLUS [Suspect]
     Indication: CARDIAC DISORDER
     Route: 048
  46. OXAZEPAM [Suspect]
     Indication: SEDATION
     Dosage: UNK
     Route: 048
     Dates: start: 20050708, end: 20050708
  47. PREDNISOLONE [Suspect]
     Dosage: 100 MG, 1X/DAY
     Route: 048
     Dates: start: 20050721, end: 20050721
  48. VERAPAMIL HYDROCHLORIDE [Suspect]
     Dosage: 80 MG, 3X/DAY
     Route: 048
  49. AVELOX [Suspect]
     Indication: CHRONIC OBSTRUCTIVE PULMONARY DISEASE
     Dosage: 400 MG, 1X/DAY
     Route: 048
     Dates: start: 20050627, end: 20050703
  50. CLONIDINE HYDROCHLORIDE [Suspect]
     Dosage: 1.5 MG, 1X/DAY
     Route: 042
     Dates: start: 20050703, end: 20050704
  51. BRICANYL [Suspect]
     Indication: DYSPNOEA
     Dosage: 1 AMPOULE
     Route: 058
     Dates: start: 20050627, end: 20050709
  52. PREDNISOLONE [Suspect]
     Dosage: 5 MG, UNK
     Route: 048
  53. KALINOR-BRAUSETABLETTEN [Suspect]
     Indication: HYPOKALAEMIA
     Dosage: 1 DF, 1X/DAY
     Route: 048
     Dates: start: 20050704, end: 20050714
  54. OMEPRAZOLE [Suspect]
     Indication: GASTRIC DISORDER
     Dosage: 20 MG, 1X/DAY IN THE EVENING
     Route: 048
     Dates: start: 20050719

REACTIONS (6)
  - NIKOLSKY'S SIGN [None]
  - STEVENS-JOHNSON SYNDROME [None]
  - TOXIC EPIDERMAL NECROLYSIS [None]
  - PYREXIA [None]
  - BLISTER [None]
  - PRURITUS [None]
